FAERS Safety Report 13139880 (Version 1)
Quarter: 2017Q1

REPORT INFORMATION
  Report Type: Spontaneous
  Country: US (occurrence: US)
  Receive Date: 20170123
  Receipt Date: 20170123
  Transmission Date: 20170428
  Serious: Yes (Hospitalization)
  Sender: FDA-Public Use
  Company Number: US-ENDO PHARMACEUTICALS INC-2017-000216

PATIENT
  Age: 54 Year
  Sex: Female

DRUGS (7)
  1. ARTIFICIAL TEARS                   /00445101/ [Concomitant]
     Indication: BASEDOW^S DISEASE
     Dosage: UNK UNK, UNKNOWN
     Route: 065
  2. PREDNISONE TABLETS [Suspect]
     Active Substance: PREDNISONE
     Indication: ENDOCRINE OPHTHALMOPATHY
     Dosage: 80 MG, OD
     Route: 048
  3. METHIMAZOLE. [Concomitant]
     Active Substance: METHIMAZOLE
     Indication: ENDOCRINE OPHTHALMOPATHY
  4. METOPROLOL. [Concomitant]
     Active Substance: METOPROLOL
     Indication: ENDOCRINE OPHTHALMOPATHY
  5. METHIMAZOLE. [Concomitant]
     Active Substance: METHIMAZOLE
     Indication: BASEDOW^S DISEASE
     Dosage: UNK UNK, UNKNOWN
     Route: 065
  6. METOPROLOL. [Concomitant]
     Active Substance: METOPROLOL
     Indication: BASEDOW^S DISEASE
     Dosage: UNK UNK, UNKNOWN
     Route: 065
  7. ARTIFICIAL TEARS                   /00445101/ [Concomitant]
     Indication: ENDOCRINE OPHTHALMOPATHY

REACTIONS (1)
  - Diabetic ketoacidosis [Recovered/Resolved]
